FAERS Safety Report 13759152 (Version 2)
Quarter: 2017Q3

REPORT INFORMATION
  Report Type: Spontaneous
  Country: JP (occurrence: JP)
  Receive Date: 20170717
  Receipt Date: 20170721
  Transmission Date: 20171127
  Serious: Yes (Other)
  Sender: FDA-Public Use
  Company Number: JP-OTSUKA-2017_015019

PATIENT

DRUGS (3)
  1. FLUDARABINE [Concomitant]
     Active Substance: FLUDARABINE PHOSPHATE
     Indication: BONE MARROW CONDITIONING REGIMEN
     Dosage: 30 MG/M2, UNK
     Route: 065
  2. BUSULFEX [Suspect]
     Active Substance: BUSULFAN
     Indication: BONE MARROW CONDITIONING REGIMEN
     Dosage: 3.2 MG/KG, QID
     Route: 042
  3. BUSULFEX [Suspect]
     Active Substance: BUSULFAN
     Dosage: 11.2 MG/KG, UNK
     Route: 042

REACTIONS (1)
  - Neurotoxicity [Unknown]
